FAERS Safety Report 13109517 (Version 1)
Quarter: 2017Q1

REPORT INFORMATION
  Report Type: Spontaneous
  Country: US (occurrence: US)
  Receive Date: 20170112
  Receipt Date: 20170112
  Transmission Date: 20170428
  Serious: No
  Sender: FDA-Public Use
  Company Number: None

PATIENT
  Age: 60 Year
  Sex: Male

DRUGS (1)
  1. SUTENT [Suspect]
     Active Substance: SUNITINIB MALATE
     Indication: RENAL CANCER
     Dosage: 50MG DAILY FOR 6 WEEKS ON, 2 ORALLY
     Route: 048
     Dates: start: 20160823

REACTIONS (3)
  - Dyspepsia [None]
  - Gastrooesophageal reflux disease [None]
  - Odynophagia [None]

NARRATIVE: CASE EVENT DATE: 20170111
